FAERS Safety Report 18536740 (Version 2)
Quarter: 2020Q4

REPORT INFORMATION
  Report Type: Report from Study
  Country: US (occurrence: US)
  Receive Date: 20201123
  Receipt Date: 20201225
  Transmission Date: 20210114
  Serious: Yes (Hospitalization)
  Sender: FDA-Public Use
  Company Number: NVSC2020US306671

PATIENT
  Sex: Male

DRUGS (2)
  1. ENTRESTO [Suspect]
     Active Substance: SACUBITRIL\VALSARTAN
     Indication: PRODUCT USED FOR UNKNOWN INDICATION
     Dosage: UNK
     Route: 065
  2. ENTRESTO [Suspect]
     Active Substance: SACUBITRIL\VALSARTAN
     Dosage: 1 DF, QD
     Route: 065

REACTIONS (12)
  - Frequent bowel movements [Unknown]
  - Headache [Unknown]
  - Fluid retention [Unknown]
  - Ejection fraction decreased [Unknown]
  - Chest pain [Unknown]
  - Weight increased [Unknown]
  - Cough [Unknown]
  - Product prescribing error [Unknown]
  - Hypotension [Unknown]
  - Dizziness [Unknown]
  - Dyspnoea [Unknown]
  - Underdose [Unknown]
